FAERS Safety Report 4705829-8 (Version None)
Quarter: 2005Q3

REPORT INFORMATION
  Report Type: 
  Country: None (occurrence: None)
  Receive Date: 20050701
  Receipt Date: 20050601
  Transmission Date: 20060218
  Serious: Yes (Hospitalization, Other)
  Sender: FDA-Public Use
  Company Number: FR-ABBOTT-05P-056-0302596-00

PATIENT
  Sex: Female
  Weight: 89 kg

DRUGS (8)
  1. HUMIRA [Suspect]
     Indication: RHEUMATOID ARTHRITIS
     Route: 058
     Dates: start: 20040416, end: 20041209
  2. CORTICOSTEROIDS [Concomitant]
     Indication: DRUG USE FOR UNKNOWN INDICATION
  3. METHOTREXATE [Concomitant]
     Indication: POLYARTHRITIS
     Route: 048
     Dates: start: 20040728, end: 20040921
  4. PREDNISONE [Concomitant]
     Indication: POLYARTHRITIS
     Route: 048
  5. DICLOFENAC SODIUM [Concomitant]
     Indication: POLYARTHRITIS
     Route: 048
     Dates: start: 20020301
  6. LANSOPRAZOLE [Concomitant]
     Indication: DYSPEPSIA
     Route: 048
     Dates: start: 20020301
  7. DIARTALNIC [Concomitant]
     Indication: POLYARTHRITIS
     Route: 048
     Dates: start: 20041209
  8. TREMADOL [Concomitant]
     Indication: POLYARTHRITIS
     Route: 048
     Dates: start: 20020628

REACTIONS (2)
  - DEEP VEIN THROMBOSIS [None]
  - PYODERMA GANGRENOSUM [None]
